FAERS Safety Report 5392419-X (Version None)
Quarter: 2007Q3

REPORT INFORMATION
  Report Type: 
  Country: None (occurrence: None)
  Receive Date: 20070720
  Receipt Date: 20070712
  Transmission Date: 20080115
  Serious: Yes (Other)
  Sender: FDA-Public Use
  Company Number: B0479390A

PATIENT
  Age: 76 Year
  Sex: Female

DRUGS (16)
  1. PAROXETINE HCL [Suspect]
     Dosage: 1TAB SINGLE DOSE
     Route: 048
     Dates: start: 20070301, end: 20070301
  2. CORDARONE [Suspect]
     Route: 048
     Dates: start: 20070224, end: 20070301
  3. AUGMENTIN '125' [Concomitant]
     Route: 065
     Dates: start: 20061201
  4. ATORVASTATIN CALCIUM [Concomitant]
     Route: 065
  5. OMACOR [Concomitant]
     Route: 065
  6. TAREG [Concomitant]
     Route: 065
  7. TENORMIN [Concomitant]
     Route: 065
  8. FLECAINIDE ACETATE [Concomitant]
     Route: 065
  9. ACTONEL [Concomitant]
     Route: 065
  10. CALCIPARINE [Concomitant]
     Route: 065
  11. VIT. D3 [Concomitant]
     Route: 065
  12. UNFRACTIONATED HEPARIN [Concomitant]
     Route: 065
     Dates: start: 20061201
  13. EUPANTOL [Concomitant]
     Route: 065
     Dates: start: 20061201
  14. MANNITOL [Concomitant]
     Route: 065
     Dates: start: 20061201
  15. KARDEGIC [Concomitant]
     Route: 065
  16. CIFLOX [Concomitant]
     Route: 065
     Dates: start: 20061201

REACTIONS (4)
  - CARDIAC ARREST [None]
  - HYPERTENSION [None]
  - NAUSEA [None]
  - TACHYCARDIA [None]
